FAERS Safety Report 4487730-0 (Version None)
Quarter: 2004Q4

REPORT INFORMATION
  Report Type: 
  Country: None (occurrence: None)
  Receive Date: 20041025
  Receipt Date: 20041011
  Transmission Date: 20050328
  Serious: Yes (Hospitalization, Other)
  Sender: FDA-Public Use
  Company Number: 2004076878

PATIENT
  Age: 63 Year
  Sex: Female
  Weight: 99.7913 kg

DRUGS (6)
  1. LIPITOR [Suspect]
     Indication: PROPHYLAXIS
     Dosage: 20 MG (20 MG, 1 IN 1 D), ORAL
     Route: 048
  2. ASPIRIN [Suspect]
     Indication: THROMBOPHLEBITIS
     Dosage: 650 MG (325 MG, 2 IN 1 D), ORAL
     Route: 048
     Dates: end: 20040101
  3. HEPARIN [Suspect]
     Indication: SURGERY
  4. DILTIAZEM HYDROCHLORIDE [Concomitant]
  5. RAMIPRIL [Concomitant]
  6. FOLIC ACID [Concomitant]

REACTIONS (11)
  - ABDOMINAL PAIN UPPER [None]
  - ALOPECIA [None]
  - COLITIS [None]
  - COLONIC POLYP [None]
  - DIARRHOEA [None]
  - GASTROINTESTINAL DISORDER [None]
  - HAEMATOCHEZIA [None]
  - HIP ARTHROPLASTY [None]
  - RED BLOOD CELL COUNT DECREASED [None]
  - SURGERY [None]
  - THROMBOPHLEBITIS SUPERFICIAL [None]
